FAERS Safety Report 10257545 (Version 5)
Quarter: 2014Q4

REPORT INFORMATION
  Report Type: Report from Study
  Country: JP (occurrence: JP)
  Receive Date: 20140625
  Receipt Date: 20141219
  Transmission Date: 20150528
  Serious: Yes (Other)
  Sender: FDA-Public Use
  Company Number: PHHY2014JP078161

PATIENT
  Age: 9 Month
  Sex: Female
  Weight: 7 kg

DRUGS (17)
  1. ACZ885 [Suspect]
     Active Substance: CANAKINUMAB
     Dosage: 16 MG, QD
     Route: 058
     Dates: start: 20130829
  2. ZINC OXIDE. [Concomitant]
     Active Substance: ZINC OXIDE
     Indication: PRODUCT USED FOR UNKNOWN INDICATION
     Route: 062
     Dates: start: 20130819
  3. ACZ885 [Suspect]
     Active Substance: CANAKINUMAB
     Dosage: 18 MG, QD
     Route: 058
     Dates: start: 20131031
  4. MIYA-BM [Concomitant]
     Active Substance: CLOSTRIDIUM BUTYRICUM SPORES STRAIN M-55
     Indication: PRODUCT USED FOR UNKNOWN INDICATION
     Route: 048
     Dates: start: 20130430
  5. MIYA-BM [Concomitant]
     Active Substance: CLOSTRIDIUM BUTYRICUM SPORES STRAIN M-55
     Route: 048
     Dates: end: 20130727
  6. SATOSALBE [Concomitant]
     Active Substance: ZINC OXIDE
     Indication: PRODUCT USED FOR UNKNOWN INDICATION
     Route: 062
     Dates: start: 20130514
  7. MEIACT [Concomitant]
     Active Substance: CEFDITOREN PIVOXIL
     Indication: PRODUCT USED FOR UNKNOWN INDICATION
     Dosage: 60 MG, UNK
     Route: 048
     Dates: start: 20130530
  8. ACZ885 [Suspect]
     Active Substance: CANAKINUMAB
     Dosage: 20 MG, QD
     Route: 058
     Dates: start: 20140306
  9. ZADITEN [Concomitant]
     Active Substance: KETOTIFEN FUMARATE
     Dosage: 0.5 MG, UNK
     Route: 048
     Dates: end: 20130730
  10. ACZ885 [Suspect]
     Active Substance: CANAKINUMAB
     Dosage: 20 MG, QD
     Route: 058
     Dates: start: 20140106
  11. ZADITEN [Concomitant]
     Active Substance: KETOTIFEN FUMARATE
     Indication: PRODUCT USED FOR UNKNOWN INDICATION
     Dosage: 0.4 MG, UNK
     Route: 048
     Dates: start: 20130309
  12. ACZ885 [Suspect]
     Active Substance: CANAKINUMAB
     Indication: CHRONIC INFANTILE NEUROLOGICAL CUTANEOUS AND ARTICULAR SYNDROME
     Dosage: 2 MG/KG, UNK
     Route: 058
  13. INCREMIN [Concomitant]
     Indication: PRODUCT USED FOR UNKNOWN INDICATION
     Dosage: 6 ML, UNK
     Route: 048
     Dates: start: 20130402, end: 20130704
  14. LOCOID [Concomitant]
     Active Substance: HYDROCORTISONE BUTYRATE
     Indication: PRODUCT USED FOR UNKNOWN INDICATION
     Route: 062
     Dates: start: 20130514
  15. MEIACT [Concomitant]
     Active Substance: CEFDITOREN PIVOXIL
     Dosage: 70 MG, UNK
     Route: 048
     Dates: end: 20130725
  16. ACZ885 [Suspect]
     Active Substance: CANAKINUMAB
     Dosage: 13 MG, QD
     Route: 058
     Dates: start: 20130507
  17. ACZ885 [Suspect]
     Active Substance: CANAKINUMAB
     Dosage: 15 MG, QD
     Route: 058
     Dates: start: 20130704

REACTIONS (8)
  - Streptococcus test positive [Unknown]
  - Bronchopneumonia [Recovering/Resolving]
  - Product use issue [Unknown]
  - Pyrexia [Unknown]
  - Viral upper respiratory tract infection [Unknown]
  - Drug eruption [Recovering/Resolving]
  - Adenovirus infection [Recovering/Resolving]
  - Drug ineffective [Unknown]

NARRATIVE: CASE EVENT DATE: 20130725
